FAERS Safety Report 8576561-8 (Version None)
Quarter: 2012Q3

REPORT INFORMATION
  Report Type: 
  Country: None (occurrence: None)
  Receive Date: 20120807
  Receipt Date: 20120726
  Transmission Date: 20120928
  Serious: Yes (Hospitalization, Other)
  Sender: FDA-Public Use
  Company Number: CA-JNJFOC-20120713815

PATIENT
  Sex: Male

DRUGS (17)
  1. REMICADE [Suspect]
     Route: 042
     Dates: start: 20091015
  2. REMICADE [Suspect]
     Route: 042
     Dates: start: 20090430
  3. CLONAZEPAM [Concomitant]
     Route: 048
  4. REMICADE [Suspect]
     Route: 042
     Dates: start: 20100122
  5. REMICADE [Suspect]
     Route: 042
     Dates: start: 20090820
  6. LAMIVUDINE (EPIVIR HBV) [Concomitant]
     Route: 065
  7. REMICADE [Suspect]
     Route: 042
     Dates: start: 20100812, end: 20100830
  8. CHLORAL HYDRATE [Concomitant]
     Route: 048
  9. REMICADE [Suspect]
     Indication: RHEUMATOID ARTHRITIS
     Route: 042
     Dates: start: 20100319
  10. REMICADE [Suspect]
     Route: 042
     Dates: start: 20100617
  11. GABAPENTIN [Concomitant]
     Route: 048
  12. ANALGESIC [Concomitant]
     Route: 065
  13. REMICADE [Suspect]
     Route: 042
     Dates: start: 20090625
  14. REMICADE [Suspect]
     Route: 042
     Dates: start: 20090211
  15. RALTEGRAVIR [Concomitant]
     Route: 065
  16. RITONAVIR [Concomitant]
     Route: 065
  17. DARUNAVIR ETHANOLATE [Concomitant]
     Route: 065

REACTIONS (12)
  - SMALL INTESTINAL OBSTRUCTION [None]
  - RESPIRATORY FAILURE [None]
  - GASTROINTESTINAL CARCINOMA [None]
  - OESOPHAGEAL CANDIDIASIS [None]
  - HYPOTENSION [None]
  - METASTATIC NEOPLASM [None]
  - CARCINOMA IN SITU [None]
  - PNEUMONIA ASPIRATION [None]
  - WEIGHT DECREASED [None]
  - HAEMOGLOBIN DECREASED [None]
  - THERAPEUTIC RESPONSE DECREASED [None]
  - ANOGENITAL DYSPLASIA [None]
